FAERS Safety Report 13158165 (Version 1)
Quarter: 2017Q1

REPORT INFORMATION
  Report Type: Spontaneous
  Country: US (occurrence: US)
  Receive Date: 20170127
  Receipt Date: 20170127
  Transmission Date: 20170428
  Serious: Yes (Other)
  Sender: FDA-Public Use
  Company Number: US-BRAINTREE LABORATORIES-170049

PATIENT
  Age: 75 Year
  Sex: Female
  Weight: 54.43 kg

DRUGS (1)
  1. SUPREP BOWEL PREP [Suspect]
     Active Substance: MAGNESIUM SULFATE\POTASSIUM SULFATE\SODIUM SULFATE
     Indication: COLONOSCOPY
     Dosage: 1.2X6OZ. BOTTLE
     Route: 048
     Dates: start: 20170116, end: 20170117

REACTIONS (6)
  - Hypertension [None]
  - Nausea [None]
  - Blood electrolytes abnormal [None]
  - Tremor [None]
  - Vomiting [None]
  - Gait disturbance [None]

NARRATIVE: CASE EVENT DATE: 20170116
